FAERS Safety Report 8921329 (Version 1)
Quarter: 2012Q4

REPORT INFORMATION
  Report Type: 
  Country: JP (occurrence: JP)
  Receive Date: 20121121
  Receipt Date: 20121121
  Transmission Date: 20130627
  Serious: Yes (Life-Threatening, Hospitalization)
  Sender: FDA-Public Use
  Company Number: JP-ROCHE-950930017001

PATIENT
  Age: 87 Year
  Sex: Female
  Weight: 55 kg

DRUGS (8)
  1. ROCEPHIN [Suspect]
     Indication: PNEUMONIA
     Route: 042
     Dates: start: 19950126, end: 19950206
  2. LANIRAPID [Concomitant]
     Indication: CARDIAC DISORDER
     Route: 048
     Dates: start: 19950112, end: 19950209
  3. DIART [Concomitant]
     Indication: CARDIOVASCULAR DISORDER
     Route: 048
     Dates: start: 19950112, end: 19950209
  4. ALDACTONE-A [Concomitant]
     Indication: CARDIOVASCULAR DISORDER
     Route: 048
     Dates: start: 19950112, end: 19950209
  5. MEXITIL [Concomitant]
     Indication: ARRHYTHMIA
     Route: 048
     Dates: start: 19950112, end: 19950208
  6. MARZULENE S [Concomitant]
     Indication: PROPHYLAXIS
     Route: 048
     Dates: start: 19950112, end: 19950209
  7. ALDIOXA [Concomitant]
     Indication: PROPHYLAXIS
     Route: 048
     Dates: start: 19950112, end: 19950209
  8. FRANDOL [Concomitant]
     Indication: ANGINA PECTORIS
     Route: 062

REACTIONS (2)
  - Renal failure acute [Recovered/Resolved]
  - Rash [Recovered/Resolved]
